FAERS Safety Report 8630135 (Version 2)
Quarter: 2012Q4

REPORT INFORMATION
  Report Type: 
  Country: FR (occurrence: FR)
  Receive Date: 20120622
  Receipt Date: 20121001
  Transmission Date: 20130627
  Serious: Yes (Hospitalization)
  Sender: FDA-Public Use
  Company Number: FR-UCBSA-059802

PATIENT
  Age: 91 Year
  Sex: Female

DRUGS (4)
  1. KEPPRA [Suspect]
     Indication: EPILEPSY
     Route: 048
     Dates: start: 20120516, end: 20120615
  2. EBIXA [Concomitant]
     Indication: DEMENTIA ALZHEIMER^S TYPE
     Route: 048
  3. SEROPLEX [Concomitant]
     Indication: DEPRESSION
  4. IMOVANE [Concomitant]
     Indication: SLEEP DISORDER
     Route: 048

REACTIONS (1)
  - Psychiatric decompensation [Recovered/Resolved]
